FAERS Safety Report 8507769-5 (Version None)
Quarter: 2012Q3

REPORT INFORMATION
  Report Type: 
  Country: None (occurrence: None)
  Receive Date: 20120709
  Receipt Date: 20120709
  Transmission Date: 20120928
  Serious: No
  Sender: FDA-Public Use
  Company Number: None

PATIENT
  Sex: Female
  Weight: 78.563 kg

DRUGS (3)
  1. ESTRADIOL [Concomitant]
  2. LEXAPRO [Suspect]
     Indication: ANXIETY
     Dates: start: 20120620, end: 20120627
  3. VITAMIN B12 1000 MG [Concomitant]

REACTIONS (5)
  - DECREASED APPETITE [None]
  - MOVEMENT DISORDER [None]
  - DRUG INEFFECTIVE [None]
  - FEELING ABNORMAL [None]
  - FATIGUE [None]
